FAERS Safety Report 12156040 (Version 1)
Quarter: 2016Q1

REPORT INFORMATION
  Report Type: Spontaneous
  Country: US (occurrence: US)
  Receive Date: 20160307
  Receipt Date: 20160307
  Transmission Date: 20160526
  Serious: No
  Sender: FDA-Public Use
  Company Number: US-ASTRAZENECA-2016SE23498

PATIENT
  Sex: Female

DRUGS (1)
  1. NEXIUM 24HR [Suspect]
     Active Substance: ESOMEPRAZOLE MAGNESIUM
     Indication: GASTROOESOPHAGEAL REFLUX DISEASE
     Dosage: 1 DF, 1X/DAY AN HOUR BEFORE BREAKFAST
     Route: 048

REACTIONS (4)
  - Dyspepsia [Unknown]
  - Blood magnesium decreased [Unknown]
  - Constipation [Unknown]
  - Oesophageal pain [Unknown]
